FAERS Safety Report 24647427 (Version 4)
Quarter: 2025Q1

REPORT INFORMATION
  Report Type: Spontaneous
  Country: ES (occurrence: ES)
  Receive Date: 20241121
  Receipt Date: 20250219
  Transmission Date: 20250408
  Serious: Yes (Hospitalization, Other)
  Sender: FRESENIUS KABI
  Company Number: ES-HIKMA PHARMACEUTICALS-ES-H14001-24-10250

PATIENT
  Age: 75 Year
  Sex: Male
  Weight: 105.3 kg

DRUGS (26)
  1. PEMETREXED [Suspect]
     Active Substance: PEMETREXED
     Indication: Non-small cell lung cancer
     Dosage: 500 MILLIGRAM/SQ. METER, 3W?FOA-INFUSION
     Route: 042
     Dates: start: 20241002, end: 20241002
  2. PEMETREXED [Suspect]
     Active Substance: PEMETREXED
     Route: 042
     Dates: start: 20241204, end: 20241204
  3. PEMETREXED [Suspect]
     Active Substance: PEMETREXED
     Route: 042
     Dates: start: 20241224, end: 20241224
  4. CARBOPLATIN [Suspect]
     Active Substance: CARBOPLATIN
     Indication: Non-small cell lung cancer
     Dosage: 629 MILLIGRAM, 3W?FOA-INFUSION
     Route: 042
     Dates: start: 20241002, end: 20241002
  5. CARBOPLATIN [Suspect]
     Active Substance: CARBOPLATIN
     Route: 042
     Dates: start: 20241204, end: 20241204
  6. CARBOPLATIN [Suspect]
     Active Substance: CARBOPLATIN
     Route: 042
     Dates: start: 20241224, end: 20241224
  7. VUDALIMAB [Suspect]
     Active Substance: VUDALIMAB
     Indication: Non-small cell lung cancer
     Dosage: 500 MILLIGRAM  (TOTAL DOSE ADMINISTERED: 500 MG) , 3W?FOA-INFUSION
     Route: 042
     Dates: start: 20241002, end: 20241002
  8. VUDALIMAB [Suspect]
     Active Substance: VUDALIMAB
     Route: 042
     Dates: start: 20241106
  9. VUDALIMAB [Suspect]
     Active Substance: VUDALIMAB
     Route: 042
     Dates: start: 20241106
  10. VUDALIMAB [Suspect]
     Active Substance: VUDALIMAB
     Dosage: 500 MILLIGRAM, QOW?FOA-INFUSION
     Route: 042
     Dates: start: 20241204, end: 20241204
  11. VUDALIMAB [Suspect]
     Active Substance: VUDALIMAB
     Dosage: 500 MILLIGRAM, 3W?FOA-INFUSION
     Route: 042
     Dates: start: 20241224, end: 20241224
  12. HYDROCHLOROTHIAZIDE [Concomitant]
     Active Substance: HYDROCHLOROTHIAZIDE
     Indication: Product used for unknown indication
     Dates: start: 2004
  13. OLMESARTAN [OLMESARTAN] [Concomitant]
     Indication: Product used for unknown indication
     Dates: start: 2004
  14. AMLODIPINE [AMLODIPINE] [Concomitant]
     Indication: Hypertension
     Dates: start: 2004
  15. METFORMIN [METFORMIN] [Concomitant]
     Indication: Type 2 diabetes mellitus
     Dates: start: 2004
  16. BISOPROLOL [Concomitant]
     Active Substance: BISOPROLOL
     Indication: Myocardial ischaemia
     Dates: start: 2009
  17. OMEPRAZOLE [Concomitant]
     Active Substance: OMEPRAZOLE
     Indication: Prophylaxis
  18. FEBUXOSTAT [FEBUXOSTAT] [Concomitant]
     Indication: Osteitis deformans
  19. ACETYLSALICYLIC ACID [ACETYLSALICYLIC ACID] [Concomitant]
     Indication: Myocardial ischaemia
     Dates: start: 2009
  20. DULAGLUTIDE [DULAGLUTIDE] [Concomitant]
     Indication: Type 2 diabetes mellitus
     Dates: start: 2004
  21. ATORVASTATIN [Concomitant]
     Active Substance: ATORVASTATIN
     Indication: Dyslipidaemia
     Dates: start: 2004
  22. FOLIC ACID [FOLIC ACID] [Concomitant]
     Indication: Prophylaxis
     Dates: start: 20241001
  23. VITAMIN B12 NOS [VITAMIN B12 NOS] [Concomitant]
     Indication: Prophylaxis
     Dates: start: 20241001
  24. PIPERACILLIN [PIPERACILLIN] [Concomitant]
     Indication: Pyrexia
     Dates: start: 20241018, end: 20241025
  25. AKYNZEO (NETUPITANT\PALONOSETRON HYDROCHLORIDE) [Concomitant]
     Active Substance: NETUPITANT\PALONOSETRON HYDROCHLORIDE
     Indication: Product used for unknown indication
     Dates: start: 20241002, end: 20241002
  26. DEXAMETHASONE [Concomitant]
     Active Substance: DEXAMETHASONE
     Indication: Product used for unknown indication
     Dates: start: 20241002, end: 20241002

REACTIONS (10)
  - Pyrexia [Recovered/Resolved]
  - Rash [Unknown]
  - Anaemia [Unknown]
  - C-reactive protein increased [Unknown]
  - Blood creatinine increased [Unknown]
  - Platelet count decreased [Unknown]
  - Ultrasound abdomen abnormal [Unknown]
  - Angina pectoris [Recovered/Resolved]
  - Influenza [Unknown]
  - Chest X-ray abnormal [Unknown]

NARRATIVE: CASE EVENT DATE: 20241018
